FAERS Safety Report 19665507 (Version 2)
Quarter: 2024Q3

REPORT INFORMATION
  Report Type: Spontaneous
  Country: US (occurrence: US)
  Receive Date: 20210806
  Receipt Date: 20240802
  Transmission Date: 20241017
  Serious: No
  Sender: ACCORD
  Company Number: US-ACCORD-220442

PATIENT
  Age: 54 Year
  Sex: Female

DRUGS (4)
  1. DOCETAXEL [Suspect]
     Active Substance: DOCETAXEL\DOCETAXEL ANHYDROUS
     Indication: Breast cancer
     Dosage: NUMBER OF CYCLES: 4 CYCLES?FREQUENCY: EVERY 3 WEEKS
     Dates: start: 20180831, end: 20181102
  2. DECADRON [Suspect]
     Active Substance: DEXAMETHASONE
     Indication: Breast cancer
     Dosage: IN 250CC NS
  3. CYTOXAN [Suspect]
     Active Substance: CYCLOPHOSPHAMIDE
     Indication: Breast cancer
     Dosage: IN 250CC NS
     Dates: start: 20180831, end: 20181102
  4. PALBOCICLIB [Suspect]
     Active Substance: PALBOCICLIB
     Indication: Breast cancer

REACTIONS (5)
  - Dacryostenosis acquired [Not Recovered/Not Resolved]
  - Nausea [Unknown]
  - Skin discolouration [Unknown]
  - Anxiety [Unknown]
  - Vomiting [Unknown]

NARRATIVE: CASE EVENT DATE: 20180901
